FAERS Safety Report 9694854 (Version 2)
Quarter: 2013Q4

REPORT INFORMATION
  Report Type: Spontaneous
  Country: JP (occurrence: JP)
  Receive Date: 20131119
  Receipt Date: 20131212
  Transmission Date: 20140711
  Serious: Yes (Hospitalization)
  Sender: FDA-Public Use
  Company Number: JP-ROCHE-1302130

PATIENT
  Age: 9 Year
  Sex: Female
  Weight: 32 kg

DRUGS (5)
  1. CELLCEPT [Suspect]
     Indication: PROPHYLAXIS AGAINST TRANSPLANT REJECTION
     Dosage: DOSE REDUCED
     Route: 048
     Dates: start: 20070228, end: 20130523
  2. CELLCEPT [Suspect]
     Route: 048
     Dates: start: 201305
  3. PROGRAF [Suspect]
     Indication: PROPHYLAXIS AGAINST TRANSPLANT REJECTION
     Dosage: DOSAGE IS UNCERTAIN??DOSE REDUCED
     Route: 048
     Dates: start: 20070227, end: 201302
  4. PROGRAF [Suspect]
     Route: 048
     Dates: start: 201302
  5. MIYA BM [Concomitant]
     Indication: PROPHYLAXIS
     Route: 048
     Dates: start: 20130227

REACTIONS (5)
  - Proctitis [Recovering/Resolving]
  - Renal impairment [Recovering/Resolving]
  - White blood cell count decreased [Recovered/Resolved]
  - Anaemia [Recovered/Resolved]
  - Precocious puberty [Recovered/Resolved]
